FAERS Safety Report 23515415 (Version 3)
Quarter: 2024Q3

REPORT INFORMATION
  Report Type: Spontaneous
  Country: GB (occurrence: GB)
  Receive Date: 20240213
  Receipt Date: 20240803
  Transmission Date: 20241017
  Serious: Yes (Hospitalization)
  Sender: TEVA
  Company Number: GB-BAXTER-2024BAX010373

PATIENT
  Age: 38 Year
  Sex: Female

DRUGS (23)
  1. TOBRAMYCIN [Suspect]
     Active Substance: TOBRAMYCIN\TOBRAMYCIN SULFATE
     Indication: Product used for unknown indication
     Dosage: AS A DUAL THERAPY ALONGSIDE FOSFOMYCIN
     Route: 042
  2. FOSFOMYCIN [Suspect]
     Active Substance: FOSFOMYCIN
     Indication: Infection
     Dosage: TIME INTERVAL: 0.33333333 DAYS: AS A DUAL THERAPY ALONGSIDE 340 MG TOBRAMYCIN AND 2 MU COLOMYCIN
     Route: 042
  3. FOSFOMYCIN [Suspect]
     Active Substance: FOSFOMYCIN
     Indication: Infection
     Dosage: TIME INTERVAL: 0.33333333 DAYS: AS A DUAL THERAPY ALONGSIDE 2 MU COLOMYCIN
     Route: 042
  4. FOSFOMYCIN [Suspect]
     Active Substance: FOSFOMYCIN
     Indication: Infection
     Dosage: TIME INTERVAL: 0.33333333 DAYS: AS A DUAL THERAPY ALONGSIDE 2 MU COLOMYCIN
     Route: 042
  5. FOSFOMYCIN [Suspect]
     Active Substance: FOSFOMYCIN
     Indication: Infection
     Dosage: TIME INTERVAL: 0.33333333 DAYS: AS A DUAL THERAPY ALONGSIDE 2 MU COLOMYCIN
     Route: 042
  6. FOSFOMYCIN [Suspect]
     Active Substance: FOSFOMYCIN
     Indication: Infection
     Dosage: TIME INTERVAL: 0.33333333 DAYS: AS A DUAL THERAPY ALONGSIDE 2 MU COLOMYCIN
     Route: 042
  7. FOSFOMYCIN [Suspect]
     Active Substance: FOSFOMYCIN
     Indication: Infection
     Dosage: TIME INTERVAL: 0.33333333 DAYS: AS A DUAL THERAPY ALONGSIDE 340 MG TOBRAMYCIN AND 2 MU COLOMYCIN
     Route: 042
  8. FOSFOMYCIN [Suspect]
     Active Substance: FOSFOMYCIN
     Indication: Infection
     Dosage: TIME INTERVAL: 0.33333333 DAYS: AS A DUAL THERAPY ALONGSIDE 2 MU COLOMYCIN
     Route: 042
  9. FOSFOMYCIN [Suspect]
     Active Substance: FOSFOMYCIN
     Indication: Infection
     Dosage: TIME INTERVAL: 0.33333333 DAYS
     Route: 042
     Dates: start: 20231130
  10. FOSFOMYCIN [Suspect]
     Active Substance: FOSFOMYCIN
     Indication: Infection
     Dosage: TIME INTERVAL: 0.33333333 DAYS: AS A DUAL THERAPY ALONGSIDE 340 MG TOBRAMYCIN AND 2 MU COLOMYCIN
     Route: 042
  11. FOSFOMYCIN [Suspect]
     Active Substance: FOSFOMYCIN
     Indication: Infection
     Dosage: TIME INTERVAL: 0.33333333 DAYS: AS A DUAL THERAPY ALONGSIDE 340 MG TOBRAMYCIN AND 2 MU COLOMYCIN
     Route: 042
  12. DEXTROSE [Suspect]
     Active Substance: DEXTROSE\DEXTROSE MONOHYDRATE
     Indication: Medication dilution
     Dosage: TIME INTERVAL: 0.33333333 DAYS: 250 ML THRICE A DAY, BAXTER HEALTHCARE
     Route: 042
  13. DEXTROSE [Suspect]
     Active Substance: DEXTROSE\DEXTROSE MONOHYDRATE
     Indication: Medication dilution
     Dosage: TIME INTERVAL: 0.33333333 DAYS: 250 ML THRICE A DAY, BAXTER HEALTHCARE
     Route: 042
  14. DEXTROSE [Suspect]
     Active Substance: DEXTROSE\DEXTROSE MONOHYDRATE
     Indication: Medication dilution
     Dosage: TIME INTERVAL: 0.33333333 DAYS: 250 ML THRICE A DAY, BAXTER HEALTHCARE
     Route: 042
  15. DEXTROSE [Suspect]
     Active Substance: DEXTROSE\DEXTROSE MONOHYDRATE
     Indication: Medication dilution
     Dosage: TIME INTERVAL: 0.33333333 DAYS: 250 ML THRICE A DAY, BAXTER HEALTHCARE
     Route: 042
  16. DEXTROSE [Suspect]
     Active Substance: DEXTROSE\DEXTROSE MONOHYDRATE
     Indication: Medication dilution
     Dosage: TIME INTERVAL: 0.33333333 DAYS: 250 ML THRICE A DAY, BAXTER HEALTHCARE
     Route: 042
  17. DEXTROSE [Suspect]
     Active Substance: DEXTROSE\DEXTROSE MONOHYDRATE
     Indication: Medication dilution
     Dosage: TIME INTERVAL: 0.33333333 DAYS: 250 ML THRICE A DAY, BAXTER HEALTHCARE
     Route: 042
  18. DEXTROSE [Suspect]
     Active Substance: DEXTROSE\DEXTROSE MONOHYDRATE
     Indication: Medication dilution
     Dosage: TIME INTERVAL: 0.33333333 DAYS: 250 ML THRICE A DAY, BAXTER HEALTHCARE
     Route: 042
  19. DEXTROSE [Suspect]
     Active Substance: DEXTROSE\DEXTROSE MONOHYDRATE
     Indication: Medication dilution
     Dosage: TIME INTERVAL: 0.33333333 DAYS: 250 ML THRICE A DAY, BAXTER HEALTHCARE
     Route: 042
  20. DEXTROSE [Suspect]
     Active Substance: DEXTROSE\DEXTROSE MONOHYDRATE
     Indication: Medication dilution
     Dosage: TIME INTERVAL: 0.33333333 DAYS: 250 ML THRICE A DAY, BAXTER HEALTHCARE
     Route: 042
  21. COLISTIN SULFATE [Suspect]
     Active Substance: COLISTIN SULFATE
     Indication: Condition aggravated
     Dosage: 2 MU THRICE A DAY
     Route: 042
  22. COLISTIN SULFATE [Suspect]
     Active Substance: COLISTIN SULFATE
     Indication: Condition aggravated
     Dosage: 2 MU THRICE A DAY, AS A DUAL THERAPY ALONGSIDE FOSFOMYCIN
     Route: 042
  23. COLISTIN SULFATE [Suspect]
     Active Substance: COLISTIN SULFATE
     Indication: Condition aggravated
     Dosage: 2 MU THRICE A DAY
     Route: 042
     Dates: start: 20231130

REACTIONS (8)
  - Malaise [Unknown]
  - General physical health deterioration [Unknown]
  - Product preparation error [Unknown]
  - Underdose [Unknown]
  - Product dispensing error [Unknown]
  - Product appearance confusion [Unknown]
  - Product strength confusion [Unknown]
  - Manufacturing laboratory analytical testing issue [Unknown]
